FAERS Safety Report 6998550-7 (Version None)
Quarter: 2010Q3

REPORT INFORMATION
  Report Type: 
  Country: None (occurrence: None)
  Receive Date: 20100920
  Receipt Date: 20071116
  Transmission Date: 20110219
  Serious: Yes (Hospitalization, Other)
  Sender: FDA-Public Use
  Company Number: US-ASTRAZENECA-2006UW11096

PATIENT
  Age: 10886 Day
  Sex: Female
  Weight: 105.7 kg

DRUGS (19)
  1. SEROQUEL [Suspect]
     Indication: ANXIETY
     Dosage: 25 MG TID, 100 MG AT BEDTIME, 200 MG QHS
     Route: 048
     Dates: start: 20040810
  2. SEROQUEL [Suspect]
     Indication: DEPRESSION
     Dosage: 25 MG TID, 100 MG AT BEDTIME, 200 MG QHS
     Route: 048
     Dates: start: 20040810
  3. SEROQUEL [Suspect]
     Indication: BIPOLAR DISORDER
     Dosage: 25 MG TID, 100 MG AT BEDTIME, 200 MG QHS
     Route: 048
     Dates: start: 20040810
  4. SEROQUEL [Suspect]
     Route: 048
     Dates: end: 20060201
  5. SEROQUEL [Suspect]
     Route: 048
     Dates: end: 20060201
  6. SEROQUEL [Suspect]
     Route: 048
     Dates: end: 20060201
  7. LANTUS [Concomitant]
     Dosage: 40 UNITS TWO TIMES A DAY
     Route: 058
     Dates: start: 20030101
  8. BENADRYL [Concomitant]
     Dosage: 50 MG
     Route: 030
     Dates: start: 20000717
  9. SOLU-MEDROL [Concomitant]
     Dates: start: 20050419
  10. HUMALOG [Concomitant]
     Dates: start: 20041104
  11. NEURONTIN [Concomitant]
     Route: 048
     Dates: start: 20040814
  12. ALTACE [Concomitant]
     Dates: start: 20020902
  13. ALBUTEROL [Concomitant]
     Dates: start: 20030412
  14. GLUCOPHAGE [Concomitant]
     Dates: start: 20010901
  15. AMARYL [Concomitant]
     Dates: start: 19990523
  16. CLARITIN [Concomitant]
     Indication: ASTHMA
     Dates: start: 20000927
  17. CLARITIN [Concomitant]
     Indication: SINUS DISORDER
     Dates: start: 20000927
  18. PAXIL CR [Concomitant]
     Route: 048
     Dates: start: 20040909
  19. GLYBURIDE [Concomitant]
     Dosage: 5 MG TWO TAB QAM AND ONE QPM
     Route: 048
     Dates: start: 19980814

REACTIONS (4)
  - DIABETES MELLITUS [None]
  - DIABETES MELLITUS INADEQUATE CONTROL [None]
  - HYPERGLYCAEMIA [None]
  - TYPE 1 DIABETES MELLITUS [None]
